FAERS Safety Report 9687031 (Version 2)
Quarter: 2013Q4

REPORT INFORMATION
  Report Type: Spontaneous
  Country: US (occurrence: US)
  Receive Date: 20131113
  Receipt Date: 20131126
  Transmission Date: 20140711
  Serious: Yes (Hospitalization, Other)
  Sender: FDA-Public Use
  Company Number: US-B.I. PHARMACEUTICALS,INC./RIDGEFIELD-2013-BI-36466BP

PATIENT
  Sex: Female
  Weight: 48 kg

DRUGS (6)
  1. SPIRIVA [Suspect]
     Indication: ASTHMA
     Dosage: 18 MCG
     Route: 055
     Dates: start: 2007
  2. LOPRESSOR [Concomitant]
     Indication: HYPERTENSION
     Dosage: 150 MG
     Route: 048
  3. ADVAIR [Concomitant]
     Indication: ASTHMA
     Dosage: 1 PUF
     Route: 055
     Dates: start: 2007
  4. PLAVIX [Concomitant]
     Dosage: 75 MG
     Route: 048
  5. LISINOPRIL [Concomitant]
     Indication: HYPERTENSION
     Dosage: 20 MG
     Route: 048
  6. FOLIC [Concomitant]
     Dosage: 1 MG
     Route: 048

REACTIONS (5)
  - Fall [Recovered/Resolved]
  - Hip fracture [Recovered/Resolved]
  - Myocardial infarction [Recovered/Resolved]
  - Chest pain [Not Recovered/Not Resolved]
  - Off label use [Not Recovered/Not Resolved]
